FAERS Safety Report 6367544-7 (Version None)
Quarter: 2009Q3

REPORT INFORMATION
  Report Type: 
  Country: None (occurrence: None)
  Receive Date: 20090921
  Receipt Date: 20090917
  Transmission Date: 20100115
  Serious: Yes (Life-Threatening)
  Sender: FDA-Public Use
  Company Number: AU-B.I. PHARMACEUTICALS,INC./RIDGEFIELD-2009-AU-00528AU

PATIENT
  Age: 22 Year
  Sex: Female
  Weight: 55 kg

DRUGS (1)
  1. MOBIC [Suspect]
     Dosage: 15 MG
     Route: 048
     Dates: start: 20090415, end: 20090415

REACTIONS (1)
  - ASTHMA [None]
